FAERS Safety Report 4617453-6 (Version None)
Quarter: 2005Q1

REPORT INFORMATION
  Report Type: 
  Country: None (occurrence: None)
  Receive Date: 20050322
  Receipt Date: 20050302
  Transmission Date: 20050727
  Serious: Yes (Hospitalization)
  Sender: FDA-Public Use
  Company Number: CIO05004199

PATIENT
  Age: 44 Year
  Sex: Male
  Weight: 68 kg

DRUGS (1)
  1. DAYQUIL NON-DROWSY SINUS (IBUPROFEN 200 MG. PSEUDOEPHEDRINE HYDROCHLOR [Suspect]
     Dosage: 1 LIQCAP, 1 ONLY FOR 1 DAY,ORAL
     Route: 048
     Dates: start: 20050213, end: 20050213

REACTIONS (3)
  - CARDIAC FIBRILLATION [None]
  - FEAR [None]
  - HEART RATE INCREASED [None]
